FAERS Safety Report 7240410-0 (Version None)
Quarter: 2011Q1

REPORT INFORMATION
  Report Type: 
  Country: None (occurrence: None)
  Receive Date: 20110124
  Receipt Date: 20110114
  Transmission Date: 20110831
  Serious: Yes (Other)
  Sender: FDA-Public Use
  Company Number: US-JNJFOC-20101007292

PATIENT
  Sex: Female
  Weight: 120.2 kg

DRUGS (9)
  1. FOLIC ACID [Concomitant]
  2. DARVOCET [Concomitant]
  3. MOBIC [Concomitant]
  4. PREDNISONE [Concomitant]
  5. PLAQUENIL [Concomitant]
  6. REMICADE [Suspect]
     Indication: ANKYLOSING SPONDYLITIS
     Route: 042
  7. REMICADE [Suspect]
     Route: 042
  8. MTX [Concomitant]
  9. ACIPHEX [Concomitant]

REACTIONS (1)
  - LUPUS-LIKE SYNDROME [None]
